FAERS Safety Report 18777638 (Version 2)
Quarter: 2021Q2

REPORT INFORMATION
  Report Type: Spontaneous
  Country: US (occurrence: US)
  Receive Date: 20210122
  Receipt Date: 20210507
  Transmission Date: 20210717
  Serious: Yes (Hospitalization)
  Sender: FDA-Public Use
  Company Number: US-TEVA-2021-US-1869871

PATIENT
  Age: 34 Year
  Sex: Male

DRUGS (1)
  1. TESTOSTERONE. [Suspect]
     Active Substance: TESTOSTERONE
     Indication: DRUG ABUSE
     Dosage: WEEKLY INJECTIONS
     Route: 065

REACTIONS (3)
  - Focal segmental glomerulosclerosis [Unknown]
  - Acute kidney injury [Unknown]
  - Drug abuse [Unknown]
